FAERS Safety Report 4527628-2 (Version None)
Quarter: 2004Q4

REPORT INFORMATION
  Report Type: 
  Country: None (occurrence: None)
  Receive Date: 20041124
  Receipt Date: 20040618
  Transmission Date: 20050328
  Serious: Yes (Other)
  Sender: FDA-Public Use
  Company Number: 2004029517

PATIENT
  Age: 63 Year
  Sex: Male
  Weight: 83.9154 kg

DRUGS (10)
  1. TIKOSYN [Suspect]
     Indication: ATRIAL TACHYCARDIA
     Dosage: (2 IN 1 D), ORAL
     Route: 048
     Dates: start: 20020101, end: 20040428
  2. OLMESARTAN MEDOXOMIL (OLMESARTAN MEDOXOMIL) [Concomitant]
  3. AMLODIPINE BESYLATE [Concomitant]
  4. FINASTERIDE [Concomitant]
  5. WARFARIN SODIUM [Concomitant]
  6. FUROSEMIDE [Concomitant]
  7. TRAZODONE HCL [Concomitant]
  8. LINSEED OIL (LINSEED OIL) [Concomitant]
  9. MULTIVITAMINS (ASCORBIC ACID, ERGOCALCIFEROL, FOLIC ACID, NICOTINAMIDE [Concomitant]
  10. UBIDECARENONE (UBIDECARENONE) [Concomitant]

REACTIONS (4)
  - ARRHYTHMIA [None]
  - BLOOD PRESSURE DECREASED [None]
  - DIZZINESS [None]
  - DRUG INEFFECTIVE [None]
